FAERS Safety Report 10543710 (Version 1)
Quarter: 2014Q4

REPORT INFORMATION
  Report Type: Spontaneous
  Country: US (occurrence: US)
  Receive Date: 20141027
  Receipt Date: 20141027
  Transmission Date: 20150529
  Serious: No
  Sender: FDA-Public Use
  Company Number: US-MYLANLABS-2014SP004292

PATIENT

DRUGS (10)
  1. DEPAKOTE [Suspect]
     Active Substance: DIVALPROEX SODIUM
  2. FLAGYL [Suspect]
     Active Substance: METRONIDAZOLE\METRONIDAZOLE HYDROCHLORIDE
  3. AMPICILLIN [Suspect]
     Active Substance: AMPICILLIN
     Indication: PRODUCT USED FOR UNKNOWN INDICATION
  4. CANASA [Suspect]
     Active Substance: MESALAMINE
  5. KEFLEX [Suspect]
     Active Substance: CEPHALEXIN
  6. PENICILLIN /00000906/ [Suspect]
     Active Substance: PENICILLIN
  7. IODINE [Suspect]
     Active Substance: IODINE
  8. DOXYCYCLINE. [Suspect]
     Active Substance: DOXYCYCLINE
     Indication: PRODUCT USED FOR UNKNOWN INDICATION
  9. ANSAID [Suspect]
     Active Substance: FLURBIPROFEN
  10. NABUMETONE. [Suspect]
     Active Substance: NABUMETONE

REACTIONS (1)
  - Drug hypersensitivity [Unknown]
